FAERS Safety Report 14259156 (Version 1)
Quarter: 2017Q4

REPORT INFORMATION
  Report Type: Spontaneous
  Country: US (occurrence: US)
  Receive Date: 20171207
  Receipt Date: 20171207
  Transmission Date: 20180321
  Serious: Yes (Death, Hospitalization)
  Sender: FDA-Public Use
  Company Number: US-ASTRAZENECA-2017SF22352

PATIENT
  Age: 73 Year
  Sex: Female

DRUGS (14)
  1. OMEPRAZOLE. [Suspect]
     Active Substance: OMEPRAZOLE
     Route: 048
  2. ZOLPIDEM [Suspect]
     Active Substance: ZOLPIDEM\ZOLPIDEM TARTRATE
     Route: 048
  3. ALPRAZOLAM. [Suspect]
     Active Substance: ALPRAZOLAM
     Route: 048
  4. MELOXICAM. [Suspect]
     Active Substance: MELOXICAM
     Route: 048
  5. TRAZODONE [Suspect]
     Active Substance: TRAZODONE HYDROCHLORIDE
     Route: 048
  6. DONEPEZIL. [Suspect]
     Active Substance: DONEPEZIL
     Route: 048
  7. METOPROLOL. [Suspect]
     Active Substance: METOPROLOL
     Route: 048
  8. DULOXETINE. [Suspect]
     Active Substance: DULOXETINE
     Route: 048
  9. VITAMIN D [Suspect]
     Active Substance: CHOLECALCIFEROL
     Route: 048
  10. BACLOFEN. [Suspect]
     Active Substance: BACLOFEN
     Route: 048
  11. BENZTROPINE [Suspect]
     Active Substance: BENZTROPINE
     Route: 048
  12. SALICYLATE SODIUM [Suspect]
     Active Substance: SODIUM SALICYLATE
     Route: 048
  13. LEVOTHYROXINE. [Suspect]
     Active Substance: LEVOTHYROXINE
     Route: 048
  14. LURASIDONE [Suspect]
     Active Substance: LURASIDONE
     Route: 048

REACTIONS (2)
  - Toxicity to various agents [Fatal]
  - Completed suicide [Fatal]
